FAERS Safety Report 7364332-X (Version None)
Quarter: 2011Q1

REPORT INFORMATION
  Report Type: 
  Country: None (occurrence: None)
  Receive Date: 20110321
  Receipt Date: 20110316
  Transmission Date: 20110831
  Serious: Yes (Death)
  Sender: FDA-Public Use
  Company Number: GB-ASTRAZENECA-2011SE11050

PATIENT
  Age: 68 Year
  Sex: Female

DRUGS (7)
  1. LANSOPRAZOLE [Concomitant]
     Route: 048
  2. DAKTARIN [Concomitant]
     Dosage: QDS
     Route: 048
  3. DIAZEPAM [Concomitant]
     Route: 048
  4. PROCHTOR PARAZINE [Concomitant]
     Route: 048
  5. SERTRALINE XL [Concomitant]
     Route: 048
  6. SIMVASTATIN [Concomitant]
     Route: 048
  7. SEROQUEL XR [Suspect]
     Indication: DEPRESSION
     Route: 048
     Dates: start: 20101227

REACTIONS (3)
  - FEELING COLD [None]
  - OVERDOSE [None]
  - COMPLETED SUICIDE [None]
